FAERS Safety Report 9026488 (Version 1)
Quarter: 2012Q4

REPORT INFORMATION
  Report Type: Spontaneous
  Country: IT (occurrence: None)
  Receive Date: 20121211
  Receipt Date: 20121211
  Transmission Date: 20130627
  Serious: Yes (Other)
  Sender: FDA-Public Use
  Company Number: AUR-APL-2012-05168

PATIENT
  Age: 59 Year
  Sex: Female

DRUGS (2)
  1. METFORMIN (METFORMIN) [Suspect]
     Indication: DIABETES MELLITUS
     Dosage: 1 Dosage forms (1 Dosage forms, 1 in 1 D), Unknown
     Dates: start: 20120513, end: 20120513
  2. NOVONORM [Suspect]
     Indication: DIABETES MELLITUS
     Dosage: 1 Dosage forms (1 Dosage forms, 1 in 1 D), Unknown
     Dates: start: 20120513, end: 20120513

REACTIONS (4)
  - Hypoglycaemia [None]
  - Palpitations [None]
  - Tremor [None]
  - Iatrogenic injury [None]
